FAERS Safety Report 26187161 (Version 1)
Quarter: 2025Q4

REPORT INFORMATION
  Report Type: Spontaneous
  Country: CN (occurrence: CN)
  Receive Date: 20251222
  Receipt Date: 20251222
  Transmission Date: 20260117
  Serious: Yes (Hospitalization, Other)
  Sender: DAIICHI
  Company Number: CN-DSJP-DS-2025-184159-CN

PATIENT
  Age: 37 Year
  Sex: Female

DRUGS (4)
  1. TRASTUZUMAB DERUXTECAN [Suspect]
     Active Substance: TRASTUZUMAB DERUXTECAN
     Indication: Breast cancer
     Dosage: 300 MG, QD
     Route: 041
     Dates: start: 20251122, end: 20251122
  2. PERTUZUMAB [Suspect]
     Active Substance: PERTUZUMAB
     Indication: Breast cancer
     Dosage: 420 MG, QD
     Route: 041
     Dates: start: 20251122, end: 20251122
  3. SODIUM CHLORIDE [Concomitant]
     Active Substance: SODIUM CHLORIDE
     Indication: Vehicle solution use
     Dosage: 250 ML, QD
     Route: 041
     Dates: start: 20251122, end: 20251122
  4. DEXTROSE [Concomitant]
     Active Substance: DEXTROSE MONOHYDRATE
     Indication: Vehicle solution use
     Dosage: 100 ML, QD
     Route: 041
     Dates: start: 20251122, end: 20251122

REACTIONS (7)
  - Vomiting [Recovering/Resolving]
  - Nausea [Recovering/Resolving]
  - Haematemesis [Recovering/Resolving]
  - Decreased appetite [Recovering/Resolving]
  - Fat intolerance [Recovering/Resolving]
  - Muscular weakness [Recovering/Resolving]
  - Oesophageal pain [Recovering/Resolving]

NARRATIVE: CASE EVENT DATE: 20251202
